FAERS Safety Report 6277671-0 (Version None)
Quarter: 2009Q3

REPORT INFORMATION
  Report Type: 
  Country: None (occurrence: None)
  Receive Date: 20090720
  Receipt Date: 20090709
  Transmission Date: 20100115
  Serious: Yes (Hospitalization, Other)
  Sender: FDA-Public Use
  Company Number: ADR7062009

PATIENT
  Age: 66 Year
  Sex: Female

DRUGS (2)
  1. SIMVASTATIN [Suspect]
     Indication: TYPE IIA HYPERLIPIDAEMIA
     Dosage: ORAL
     Route: 048
     Dates: start: 20070701
  2. NORMORIX MITE (HYDROCHLORORTHIAZIDE, AMILORIDE) [Concomitant]

REACTIONS (11)
  - GASTRODUODENITIS [None]
  - GASTROOESOPHAGEAL REFLUX DISEASE [None]
  - HELICOBACTER PYLORI IDENTIFICATION TEST POSITIVE [None]
  - HIATUS HERNIA [None]
  - HYPOTHALAMO-PITUITARY DISORDER [None]
  - NAUSEA [None]
  - OESOPHAGITIS [None]
  - TRANSIENT ISCHAEMIC ATTACK [None]
  - VISUAL FIELD DEFECT [None]
  - VOMITING [None]
  - WEIGHT DECREASED [None]
